FAERS Safety Report 7878474-3 (Version None)
Quarter: 2011Q4

REPORT INFORMATION
  Report Type: 
  Country: None (occurrence: None)
  Receive Date: 20111028
  Receipt Date: 20111013
  Transmission Date: 20120403
  Serious: Yes (Other)
  Sender: FDA-Public Use
  Company Number: 2011MA015128

PATIENT
  Age: 61 Year
  Sex: Female

DRUGS (2)
  1. VENLAFAXINE HYDROCHLORIDE [Suspect]
     Indication: DEPRESSION
     Dosage: 75 MG;QD
  2. TACROLIMUS [Concomitant]

REACTIONS (4)
  - SEROTONIN SYNDROME [None]
  - DEPRESSION [None]
  - CONDITION AGGRAVATED [None]
  - ENCEPHALOPATHY [None]
